FAERS Safety Report 8047721-X (Version None)
Quarter: 2012Q1

REPORT INFORMATION
  Report Type: 
  Country: None (occurrence: None)
  Receive Date: 20120116
  Receipt Date: 20120106
  Transmission Date: 20120608
  Serious: Yes (Other)
  Sender: FDA-Public Use
  Company Number: CHPA2012US000697

PATIENT
  Age: 93 Year
  Sex: Male

DRUGS (3)
  1. DRUG THERAPY NOS [Concomitant]
     Indication: BLOOD CHOLESTEROL
     Dosage: UNK, UNK
  2. ANTIHYPERTENSIVES [Concomitant]
     Indication: HYPERTENSION
     Dosage: UNK, UNK
  3. EX-LAX MAX STR LAX PILLS SENNA [Suspect]
     Indication: CONSTIPATION
     Dosage: 2 DF, EVERY 7 TO 10 DAYS
     Route: 048

REACTIONS (3)
  - THERAPEUTIC RESPONSE DECREASED [None]
  - DIARRHOEA [None]
  - INTESTINAL PERFORATION [None]
